FAERS Safety Report 7716115-6 (Version None)
Quarter: 2011Q3

REPORT INFORMATION
  Report Type: 
  Country: None (occurrence: None)
  Receive Date: 20110829
  Receipt Date: 20110823
  Transmission Date: 20111222
  Serious: Yes (Hospitalization)
  Sender: FDA-Public Use
  Company Number: FR-GLAXOSMITHKLINE-B0741537A

PATIENT
  Sex: Female

DRUGS (10)
  1. REQUIP [Suspect]
     Indication: PARKINSON'S DISEASE
     Dosage: 8MG IN THE MORNING
     Route: 048
     Dates: start: 20110101
  2. OROCAL D3 [Concomitant]
     Indication: OSTEOPOROSIS
     Dosage: 1TAB IN THE MORNING
     Route: 048
  3. OXYCONTIN [Suspect]
     Indication: PAIN
     Dosage: 5MG TWICE PER DAY
     Route: 048
     Dates: start: 20110101
  4. TRIVASTAL LP [Suspect]
     Indication: PARKINSON'S DISEASE
     Dosage: 50MG TWICE PER DAY
     Route: 048
  5. MODOPAR [Suspect]
     Indication: PARKINSON'S DISEASE
     Dosage: 125MG FIVE TIMES PER DAY
     Route: 048
  6. ACTONEL [Concomitant]
     Indication: OSTEOPOROSIS
     Dosage: 35MG WEEKLY
     Route: 048
  7. MODOPAR [Suspect]
     Dosage: 125MG AT NIGHT
     Route: 048
  8. CYMBALTA [Concomitant]
     Route: 048
  9. ORAMORPH SR [Suspect]
     Indication: PAIN
     Dosage: 3DROP PER DAY
     Route: 048
     Dates: start: 20110101
  10. CORDARONE [Concomitant]
     Indication: ATRIAL FIBRILLATION
     Dosage: 1UNIT FIVE TIMES PER WEEK
     Route: 048

REACTIONS (2)
  - CONFUSIONAL STATE [None]
  - HALLUCINATION [None]
